FAERS Safety Report 18081302 (Version 1)
Quarter: 2020Q3

REPORT INFORMATION
  Report Type: Spontaneous
  Country: ES (occurrence: ES)
  Receive Date: 20200728
  Receipt Date: 20200728
  Transmission Date: 20201103
  Serious: Yes (Death)
  Sender: FDA-Public Use
  Company Number: ES-MYLANLABS-2020M1067189

PATIENT
  Age: 56 Year
  Sex: Male

DRUGS (3)
  1. ACETYLSALICYLIC ACID [Interacting]
     Active Substance: ASPIRIN
     Indication: CARDIOVASCULAR EVENT PROPHYLAXIS
     Dosage: 100 MILLIGRAM, QD
     Route: 048
     Dates: start: 20200115, end: 20200302
  2. PRASUGREL. [Suspect]
     Active Substance: PRASUGREL
     Indication: CARDIOVASCULAR EVENT PROPHYLAXIS
     Dosage: 75 MILLIGRAM, QD
     Route: 048
     Dates: start: 20200212, end: 20200302
  3. HEPARINA SODICA [Interacting]
     Active Substance: HEPARIN SODIUM
     Indication: CARDIOVASCULAR EVENT PROPHYLAXIS
     Dosage: UNK
     Route: 042
     Dates: start: 20200218, end: 20200218

REACTIONS (2)
  - Drug interaction [Unknown]
  - Shock haemorrhagic [Fatal]

NARRATIVE: CASE EVENT DATE: 20200218
